FAERS Safety Report 9580157 (Version 1)
Quarter: 2013Q4

REPORT INFORMATION
  Report Type: Spontaneous
  Country: US (occurrence: US)
  Receive Date: 20131002
  Receipt Date: 20131002
  Transmission Date: 20140711
  Serious: Yes (Other)
  Sender: FDA-Public Use
  Company Number: GXBR2013US001771

PATIENT
  Sex: Male
  Weight: 13.15 kg

DRUGS (2)
  1. OMNITROPE [Suspect]
     Indication: GROWTH HORMONE DEFICIENCY
     Dosage: UNK MG, UNK
  2. LEVOTHYROXINE [Concomitant]
     Indication: HYPOPARATHYROIDISM
     Dosage: 0.025 MG, QD

REACTIONS (2)
  - Anaphylactic reaction [Unknown]
  - Swelling [Unknown]
